FAERS Safety Report 16371860 (Version 1)
Quarter: 2019Q2

REPORT INFORMATION
  Report Type: Spontaneous
  Country: FR (occurrence: FR)
  Receive Date: 20190530
  Receipt Date: 20190530
  Transmission Date: 20190711
  Serious: Yes (Death, Other)
  Sender: FDA-Public Use
  Company Number: FR-PFIZER INC-2019228904

PATIENT
  Age: 48 Year
  Sex: Male

DRUGS (10)
  1. QUESTRAN [Suspect]
     Active Substance: CHOLESTYRAMINE
     Dosage: 3 DF, 1X/DAY
     Route: 048
  2. LASILIX SPECIAL [FUROSEMIDE] [Suspect]
     Active Substance: FUROSEMIDE
     Indication: HYPERTENSION
     Dosage: 125 MG, 1X/DAY (1/4 TABLET OF 500 MG PER DAY)
     Route: 048
  3. LERCAN [Concomitant]
     Active Substance: LERCANIDIPINE
     Dosage: UNK
  4. ENVARSUS XR [Suspect]
     Active Substance: TACROLIMUS
     Indication: LIVER TRANSPLANT
     Dosage: 1 DF, 1X/DAY
     Dates: end: 201905
  5. MEDROL [Suspect]
     Active Substance: METHYLPREDNISOLONE
     Indication: LIVER TRANSPLANT
     Dosage: 1 DF, 1X/DAY
     Route: 048
  6. CACIT VITAMINE D3 [Suspect]
     Active Substance: CALCIUM CARBONATE\CHOLECALCIFEROL
     Indication: MULTI-VITAMIN DEFICIENCY
     Dosage: 1 DF, 1X/DAY (2 BAGS AT LUNCH)
     Route: 048
     Dates: end: 201905
  7. VIMPAT [Suspect]
     Active Substance: LACOSAMIDE
     Indication: SEIZURE
     Dosage: 2 DF, 1X/DAY
     Route: 048
     Dates: end: 201905
  8. ALPRAZOLAM. [Concomitant]
     Active Substance: ALPRAZOLAM
     Dosage: UNK
     Route: 048
  9. NOXAFIL [Suspect]
     Active Substance: POSACONAZOLE
     Indication: INFECTION
     Dosage: 3 DF, 1X/DAY
     Route: 048
     Dates: start: 201904, end: 201905
  10. NEBIVOLOL. [Suspect]
     Active Substance: NEBIVOLOL
     Indication: HYPERTENSION
     Dosage: 5 MG, 1X/DAY
     Route: 048
     Dates: end: 201905

REACTIONS (1)
  - Pancreatitis acute [Fatal]

NARRATIVE: CASE EVENT DATE: 20190504
